FAERS Safety Report 13911384 (Version 1)
Quarter: 2017Q3

REPORT INFORMATION
  Report Type: Spontaneous
  Country: US (occurrence: US)
  Receive Date: 20170828
  Receipt Date: 20170828
  Transmission Date: 20171127
  Serious: No
  Sender: FDA-Public Use
  Company Number: US-GLAXOSMITHKLINE-US2017132095

PATIENT
  Age: 47 Year
  Sex: Female

DRUGS (4)
  1. BREO ELLIPTA [Suspect]
     Active Substance: FLUTICASONE FUROATE\VILANTEROL TRIFENATATE
     Indication: ASTHMA
     Dosage: 1 PUFF(S), QD
     Route: 055
     Dates: start: 201607
  2. SINGULAIR [Concomitant]
     Active Substance: MONTELUKAST SODIUM
  3. AZELASTINE [Concomitant]
     Active Substance: AZELASTINE
  4. MOMETASONE [Concomitant]
     Active Substance: MOMETASONE

REACTIONS (3)
  - Anosmia [Recovering/Resolving]
  - Nasal polyps [Not Recovered/Not Resolved]
  - Abdominal pain upper [Recovering/Resolving]

NARRATIVE: CASE EVENT DATE: 201609
